FAERS Safety Report 25624977 (Version 2)
Quarter: 2025Q3

REPORT INFORMATION
  Report Type: Report from Study
  Country: US (occurrence: US)
  Receive Date: 20250731
  Receipt Date: 20250801
  Transmission Date: 20251021
  Serious: Yes (Hospitalization, Other)
  Sender: ACADIA PHARMACEUTICALS
  Company Number: US-ACADIA PHARMACEUTICALS INC.-ACA-2025-PIM-008764

PATIENT
  Age: 65 Year
  Sex: Male

DRUGS (15)
  1. NUPLAZID [Suspect]
     Active Substance: PIMAVANSERIN TARTRATE
     Indication: Parkinson^s disease
     Dosage: 34 MILLIGRAM, QD
     Route: 048
     Dates: start: 20250321, end: 20250718
  2. BREO ELLIPTA [Concomitant]
     Active Substance: FLUTICASONE FUROATE\VILANTEROL TRIFENATATE
  3. QUETIAPINE [Concomitant]
     Active Substance: QUETIAPINE
  4. QUETIAPINE [Concomitant]
     Active Substance: QUETIAPINE
  5. DESVENLAFAXINE [Concomitant]
     Active Substance: DESVENLAFAXINE
  6. MODAFINIL [Concomitant]
     Active Substance: MODAFINIL
  7. ALBUTEROL SULFATE [Concomitant]
     Active Substance: ALBUTEROL SULFATE
  8. RIVASTIGMINE [Concomitant]
     Active Substance: RIVASTIGMINE
  9. CLONAZEPAM [Concomitant]
     Active Substance: CLONAZEPAM
  10. AMLODIPINE\TELMISARTAN [Concomitant]
     Active Substance: AMLODIPINE\TELMISARTAN
  11. OMEPRAZOLE [Concomitant]
     Active Substance: OMEPRAZOLE
  12. BACLOFEN [Concomitant]
     Active Substance: BACLOFEN
  13. DEXAMETHASONE [Concomitant]
     Active Substance: DEXAMETHASONE
  14. BUPRENORPHINE [Concomitant]
     Active Substance: BUPRENORPHINE
  15. HYDROCHLOROTHIAZIDE [Concomitant]
     Active Substance: HYDROCHLOROTHIAZIDE

REACTIONS (1)
  - Pneumonia [Recovered/Resolved]

NARRATIVE: CASE EVENT DATE: 20250718
